FAERS Safety Report 8237822-5 (Version None)
Quarter: 2012Q1

REPORT INFORMATION
  Report Type: 
  Country: None (occurrence: None)
  Receive Date: 20120309
  Receipt Date: 20110204
  Transmission Date: 20120608
  Serious: Yes (Hospitalization)
  Sender: FDA-Public Use
  Company Number: PHHY2010US70184

PATIENT
  Age: 48 Year
  Sex: Female

DRUGS (10)
  1. METHOCARBAMOL [Concomitant]
  2. BACLOFEN [Concomitant]
  3. CYMBALTA [Concomitant]
  4. EXTAVIA [Suspect]
     Indication: MULTIPLE SCLEROSIS
     Dosage: 0.25 MG, QOD, SUBCUTANEOUS
     Route: 058
     Dates: start: 20100927
  5. CALCIUM CARBONATE [Concomitant]
  6. GABAPENTIN [Concomitant]
  7. NEURONTIN [Concomitant]
  8. VITAMIN B12 [Concomitant]
  9. VITAMIN D [Concomitant]
  10. VITAMINS (NO INGREDIENTS/SUBSTANCES) [Concomitant]

REACTIONS (10)
  - MULTIPLE SCLEROSIS RELAPSE [None]
  - SENSATION OF HEAVINESS [None]
  - HYPOAESTHESIA [None]
  - PAIN IN EXTREMITY [None]
  - MUSCULAR WEAKNESS [None]
  - FATIGUE [None]
  - GAIT DISTURBANCE [None]
  - VISION BLURRED [None]
  - MUSCLE TIGHTNESS [None]
  - BALANCE DISORDER [None]
